FAERS Safety Report 24984491 (Version 1)
Quarter: 2025Q1

REPORT INFORMATION
  Report Type: Spontaneous
  Country: US (occurrence: US)
  Receive Date: 20250219
  Receipt Date: 20250219
  Transmission Date: 20250408
  Serious: No
  Sender: VALIDUS
  Company Number: US-VALIDUS PHARMACEUTICALS LLC-US-VDP-2024-019343

PATIENT

DRUGS (2)
  1. LASIX [Suspect]
     Active Substance: FUROSEMIDE
     Indication: Cardiac failure congestive
     Route: 065
  2. ELIGARD [Suspect]
     Active Substance: LEUPROLIDE ACETATE
     Indication: Product used for unknown indication
     Route: 065

REACTIONS (3)
  - Dyspnoea [Unknown]
  - Oedema peripheral [Unknown]
  - Self-medication [Unknown]
